FAERS Safety Report 7527606-5 (Version None)
Quarter: 2011Q2

REPORT INFORMATION
  Report Type: 
  Country: None (occurrence: None)
  Receive Date: 20110607
  Receipt Date: 20110601
  Transmission Date: 20111010
  Serious: No
  Sender: FDA-Public Use
  Company Number: US-PFIZER INC-2011118702

PATIENT
  Sex: Female

DRUGS (1)
  1. PROVERA [Suspect]
     Dosage: UNK
     Dates: start: 20110501

REACTIONS (1)
  - MENSTRUAL DISORDER [None]
